FAERS Safety Report 7035379-8 (Version None)
Quarter: 2010Q4

REPORT INFORMATION
  Report Type: 
  Country: None (occurrence: None)
  Receive Date: 20101008
  Receipt Date: 20100921
  Transmission Date: 20110411
  Serious: Yes (Hospitalization, Other)
  Sender: FDA-Public Use
  Company Number: PHHY2010BR65915

PATIENT
  Sex: Female

DRUGS (9)
  1. DIOVAN AMLO FIX [Suspect]
     Dosage: 320/10 MG
  2. DIOVAN AMLO [Suspect]
  3. RASILEZ [Suspect]
     Dosage: 300 MG
  4. CHLORTHALIDONE [Suspect]
     Dosage: 25 MG
  5. ATENOLOL [Concomitant]
     Dosage: 100 MG
  6. CAPTOPRIL [Concomitant]
     Dosage: 50 MG, TID
  7. AMLODIPINE [Concomitant]
     Dosage: 10 MG
  8. ALDAZIDE [Concomitant]
     Dosage: 50 MG
  9. HYDRALAZINE HCL [Concomitant]

REACTIONS (15)
  - ANGIOPATHY [None]
  - BLOOD PRESSURE INADEQUATELY CONTROLLED [None]
  - BLOOD PRESSURE INCREASED [None]
  - CARDIAC HYPERTROPHY [None]
  - CEREBRAL ISCHAEMIA [None]
  - CEREBROVASCULAR ACCIDENT [None]
  - CHEST PAIN [None]
  - DIZZINESS [None]
  - HYPOTENSION [None]
  - LEFT VENTRICULAR FAILURE [None]
  - MUSCULAR WEAKNESS [None]
  - PARAESTHESIA ORAL [None]
  - SOMNOLENCE [None]
  - SPEECH DISORDER [None]
  - TRANSIENT ISCHAEMIC ATTACK [None]
